FAERS Safety Report 9298135 (Version 1)
Quarter: 2013Q1

REPORT INFORMATION
  Report Type: Spontaneous
  Country: US (occurrence: None)
  Receive Date: 20121227
  Receipt Date: 20121227
  Transmission Date: 20140127
  Serious: No
  Sender: FDA-Public Use
  Company Number: PHEH2012US006764

PATIENT
  Age: 6 Year
  Sex: Female

DRUGS (4)
  1. AFINITOR [Suspect]
     Indication: ASTROCYTOMA
     Route: 048
     Dates: start: 20120226
  2. AFINITOR [Suspect]
     Indication: TUBEROUS SCLEROSIS
     Route: 048
     Dates: start: 20120226
  3. LAMICTAL (LAMOTRIGINE) [Concomitant]
  4. MULTIVITAMINS (ASCORBIC ACID, ERGOCALCIFEROL, FOLIC CID, NICOTINAMIDE, PANTHENOL, RETINOL, RIBOFLAVIN, THIAMINE HYDROCHLORIDE) [Concomitant]

REACTIONS (3)
  - Urinary tract infection [None]
  - Rhinorrhoea [None]
  - Acne [None]
